FAERS Safety Report 18451197 (Version 1)
Quarter: 2020Q4

REPORT INFORMATION
  Report Type: Spontaneous
  Country: US (occurrence: US)
  Receive Date: 20201102
  Receipt Date: 20201102
  Transmission Date: 20210114
  Serious: No
  Sender: FDA-Public Use
  Company Number: US-TEVA-2020-US-1844034

PATIENT
  Age: 74 Year
  Sex: Male

DRUGS (1)
  1. ZOLPIDEM TARTRATE. [Suspect]
     Active Substance: ZOLPIDEM TARTRATE
     Indication: INSOMNIA
     Route: 065

REACTIONS (4)
  - Middle insomnia [Recovered/Resolved]
  - Abnormal behaviour [Recovered/Resolved]
  - Extra dose administered [Unknown]
  - Product substitution issue [Unknown]

NARRATIVE: CASE EVENT DATE: 2020
